FAERS Safety Report 4335078-7 (Version None)
Quarter: 2004Q2

REPORT INFORMATION
  Report Type: 
  Country: None (occurrence: None)
  Receive Date: 20040405
  Receipt Date: 20040323
  Transmission Date: 20050107
  Serious: Yes (Hospitalization)
  Sender: FDA-Public Use
  Company Number: STA-AE-04-MTX-113

PATIENT
  Age: 62 Year
  Sex: Female

DRUGS (1)
  1. RHEUMATREX [Suspect]
     Indication: JUVENILE ARTHRITIS
     Dosage: ORAL
     Route: 048

REACTIONS (1)
  - MENINGITIS CRYPTOCOCCAL [None]
